FAERS Safety Report 10230460 (Version 1)
Quarter: 2014Q2

REPORT INFORMATION
  Report Type: Spontaneous
  Country: US (occurrence: US)
  Receive Date: 20140611
  Receipt Date: 20140611
  Transmission Date: 20141212
  Serious: No
  Sender: FDA-Public Use
  Company Number: US-INCYTE CORPORATION-2014IN000743

PATIENT
  Age: 65 Year
  Sex: Male
  Weight: 49 kg

DRUGS (1)
  1. JAKAFI [Suspect]
     Indication: FAMILIAL POLYCYTHAEMIA
     Dosage: 10 MG, QD

REACTIONS (1)
  - Pruritus [Unknown]
